FAERS Safety Report 5589577-0 (Version None)
Quarter: 2008Q1

REPORT INFORMATION
  Report Type: 
  Country: None (occurrence: None)
  Receive Date: 20080114
  Receipt Date: 20080114
  Transmission Date: 20080703
  Serious: Yes (Hospitalization)
  Sender: FDA-Public Use
  Company Number: A0702861A

PATIENT
  Age: 71 Year
  Sex: Female

DRUGS (3)
  1. ALLI [Suspect]
     Indication: WEIGHT LOSS DIET
     Route: 048
     Dates: start: 20070707, end: 20071016
  2. LOPRESSOR [Concomitant]
  3. HYDROCORTISONE [Concomitant]

REACTIONS (6)
  - DIZZINESS [None]
  - DUODENAL ULCER [None]
  - HAEMATEMESIS [None]
  - HAEMATOCHEZIA [None]
  - NAUSEA [None]
  - SMALL INTESTINAL HAEMORRHAGE [None]
